FAERS Safety Report 9666620 (Version 1)
Quarter: 2013Q4

REPORT INFORMATION
  Report Type: Spontaneous
  Country: US (occurrence: US)
  Receive Date: 20131104
  Receipt Date: 20131104
  Transmission Date: 20140711
  Serious: No
  Sender: FDA-Public Use
  Company Number: US-BIOGENIDEC-2013BI086757

PATIENT
  Age: 38 Year
  Sex: Female

DRUGS (10)
  1. TECFIDERA [Suspect]
     Indication: MULTIPLE SCLEROSIS
     Route: 048
     Dates: start: 20130613
  2. FLUCONAZOLE [Concomitant]
  3. CITALOPRAM [Concomitant]
  4. TOPIRAMATE [Concomitant]
  5. DIAZEPAM [Concomitant]
  6. METOCLOPRAMIDE [Concomitant]
  7. MELOSICAM [Concomitant]
  8. FIORICET [Concomitant]
  9. BACLOFEN [Concomitant]
  10. DICYCLOMINE [Concomitant]

REACTIONS (3)
  - Neck pain [Unknown]
  - Fatigue [Unknown]
  - Hypoaesthesia [Unknown]
